FAERS Safety Report 21498585 (Version 1)
Quarter: 2022Q4

REPORT INFORMATION
  Report Type: Spontaneous
  Country: US (occurrence: None)
  Receive Date: 20221022
  Receipt Date: 20221022
  Transmission Date: 20230113
  Serious: Yes (Other)
  Sender: FDA-Public Use
  Company Number: None

PATIENT
  Age: 25 Year
  Sex: Female
  Weight: 70 kg

DRUGS (1)
  1. FEMICLEAR VAGINAL [Suspect]
     Active Substance: CALENDULA OFFICINALIS FLOWERING TOP\MELALEUCA CAJUPUTI LEAF OIL\OLEA EUROPAEA FRUIT VOLATILE OIL
     Indication: Fungal infection
     Dosage: FREQUENCY : AT BEDTIME;?
     Route: 067
     Dates: start: 20221020, end: 20221022

REACTIONS (4)
  - Product advertising issue [None]
  - Pain [None]
  - Drug ineffective [None]
  - Vulvovaginal pain [None]

NARRATIVE: CASE EVENT DATE: 20221021
